FAERS Safety Report 24172776 (Version 1)
Quarter: 2024Q3

REPORT INFORMATION
  Report Type: Spontaneous
  Country: CA (occurrence: CA)
  Receive Date: 20240805
  Receipt Date: 20240805
  Transmission Date: 20241016
  Serious: Yes (Death, Hospitalization)
  Sender: AMGEN
  Company Number: CA-AMGEN-CANSP2024152771

PATIENT

DRUGS (1)
  1. RITUXIMAB [Suspect]
     Active Substance: RITUXIMAB
     Indication: Immunosuppressant drug therapy
     Dosage: UNK
     Route: 065

REACTIONS (9)
  - Death [Fatal]
  - COVID-19 [Unknown]
  - COVID-19 pneumonia [Unknown]
  - Bronchopulmonary aspergillosis [Unknown]
  - Haematological infection [Unknown]
  - Cardiac disorder [Unknown]
  - Acute kidney injury [Unknown]
  - Pneumonia bacterial [Unknown]
  - Off label use [Unknown]
